FAERS Safety Report 10015319 (Version 1)
Quarter: 2014Q1

REPORT INFORMATION
  Report Type: Spontaneous
  Country: JP (occurrence: JP)
  Receive Date: 20140317
  Receipt Date: 20140317
  Transmission Date: 20141002
  Serious: Yes (Life-Threatening, Hospitalization)
  Sender: FDA-Public Use
  Company Number: JP-ASTRAZENECA-2014SE18240

PATIENT
  Age: 44 Year
  Sex: Female

DRUGS (4)
  1. SEROQUEL [Suspect]
     Route: 048
  2. SEROQUEL [Suspect]
     Route: 048
     Dates: start: 20140304, end: 20140304
  3. RIVOTRIL [Suspect]
     Route: 048
  4. RIVOTRIL [Suspect]
     Route: 048
     Dates: start: 20140304, end: 20140304

REACTIONS (3)
  - Intentional overdose [Recovered/Resolved]
  - Suicide attempt [Recovered/Resolved]
  - Hypersomnia [Recovered/Resolved]
